FAERS Safety Report 17243571 (Version 2)
Quarter: 2020Q1

REPORT INFORMATION
  Report Type: Spontaneous
  Country: FR (occurrence: FR)
  Receive Date: 20200107
  Receipt Date: 20200218
  Transmission Date: 20200409
  Serious: Yes (Other)
  Sender: FDA-Public Use
  Company Number: FR-AMGEN-FRASP2019217541

PATIENT
  Age: 66 Year
  Sex: Female
  Weight: 38 kg

DRUGS (1)
  1. PROLIA [Suspect]
     Active Substance: DENOSUMAB
     Indication: PRODUCT USED FOR UNKNOWN INDICATION
     Dosage: UNK
     Route: 065
     Dates: start: 2014

REACTIONS (3)
  - Hypertension [Unknown]
  - Spinal compression fracture [Unknown]
  - Bone fissure [Unknown]

NARRATIVE: CASE EVENT DATE: 20190521
